FAERS Safety Report 15702323 (Version 1)
Quarter: 2018Q4

REPORT INFORMATION
  Report Type: Spontaneous
  Country: FR (occurrence: FR)
  Receive Date: 20181210
  Receipt Date: 20181210
  Transmission Date: 20190205
  Serious: Yes (Hospitalization, Other)
  Sender: FDA-Public Use
  Company Number: FR-AUROBINDO-AUR-APL-2018-058346

PATIENT
  Age: 67 Year
  Sex: Male
  Weight: 82 kg

DRUGS (4)
  1. CARBOPLATIN ARROW 10MG/ML SOLUTION FOR INFUSION [Suspect]
     Active Substance: CARBOPLATIN
     Indication: LUNG NEOPLASM MALIGNANT
     Dosage: 340 MILLIGRAM EVERY CYCLE
     Route: 042
     Dates: start: 20181102, end: 20181102
  2. GEMCITABINE [Suspect]
     Active Substance: GEMCITABINE\GEMCITABINE HYDROCHLORIDE
     Indication: LUNG NEOPLASM MALIGNANT
     Dosage: 1976 MILLIGRAM EVERY CYCLE
     Route: 042
     Dates: start: 20181102, end: 20181102
  3. METHYLPREDNISOLONE MYLAN           /00049604/ [Suspect]
     Active Substance: METHYLPREDNISOLONE HEMISUCCINATE
     Indication: PROPHYLAXIS OF NAUSEA AND VOMITING
     Dosage: 80 MILLIGRAM EVERY CYCLE
     Route: 042
     Dates: start: 20181102, end: 20181102
  4. ONDANSETRON. [Suspect]
     Active Substance: ONDANSETRON
     Indication: PROPHYLAXIS OF NAUSEA AND VOMITING
     Dosage: 24 MILLIGRAM EVEVRY CYCLE
     Route: 042
     Dates: start: 20181102, end: 20181104

REACTIONS (2)
  - Hepatocellular injury [Recovering/Resolving]
  - Neutropenia [Recovering/Resolving]

NARRATIVE: CASE EVENT DATE: 20181108
